FAERS Safety Report 7623258 (Version 4)
Quarter: 2014Q1

REPORT INFORMATION
  Report Type: Spontaneous
  Country: US (occurrence: US)
  Receive Date: 20101011
  Receipt Date: 20140124
  Transmission Date: 20141002
  Serious: Yes (Other)
  Sender: FDA-Public Use
  Company Number: US-BAYER-201036177NA

PATIENT
  Age: 26 Year
  Sex: Female
  Weight: 88.44 kg

DRUGS (7)
  1. YAZ [Suspect]
     Indication: PREMENSTRUAL DYSPHORIC DISORDER
     Dosage: UNK UNK, UNK
     Route: 048
     Dates: start: 200604, end: 200702
  2. AZITHROMYCIN [Concomitant]
     Dosage: 250 MG, UNK
  3. ALBUTEROL [Concomitant]
     Dosage: 90 MCG INHALER
  4. SYMBICORT [Concomitant]
     Dosage: 160-4.5 MG
  5. ONDANSETRON [Concomitant]
     Dosage: 4 MG, UNK
  6. HYDROCODONE [Concomitant]
     Dosage: 5-500 MG
  7. TOPAMAX [Concomitant]
     Indication: MIGRAINE
     Dosage: 25 MG, BID
     Dates: start: 20081021

REACTIONS (2)
  - Gallbladder disorder [Unknown]
  - Cholecystitis chronic [None]
